FAERS Safety Report 20071079 (Version 3)
Quarter: 2022Q3

REPORT INFORMATION
  Report Type: Report from Study
  Country: US (occurrence: US)
  Receive Date: 20211115
  Receipt Date: 20220909
  Transmission Date: 20221026
  Serious: Yes (Hospitalization, Other)
  Sender: FDA-Public Use
  Company Number: US-BIOGEN-2021BI01066233

PATIENT
  Age: 33 Year
  Sex: Female

DRUGS (1)
  1. TYSABRI [Suspect]
     Active Substance: NATALIZUMAB
     Indication: Multiple sclerosis
     Route: 050
     Dates: start: 20210506

REACTIONS (6)
  - Loss of consciousness [Recovered/Resolved]
  - Loss of control of legs [Unknown]
  - Head injury [Unknown]
  - Multiple sclerosis relapse [Unknown]
  - Seizure [Unknown]
  - Postictal paralysis [Recovered/Resolved]

NARRATIVE: CASE EVENT DATE: 20210512
